FAERS Safety Report 8086574-0 (Version None)
Quarter: 2012Q1

REPORT INFORMATION
  Report Type: 
  Country: None (occurrence: None)
  Receive Date: 20120128
  Receipt Date: 20110512
  Transmission Date: 20120608
  Serious: No
  Sender: FDA-Public Use
  Company Number: US-ABBOTT-11P-163-0725198-00

PATIENT
  Age: 55 Year
  Sex: Female

DRUGS (4)
  1. HUMIRA [Suspect]
     Indication: ANKYLOSING SPONDYLITIS
     Dates: start: 20090301
  2. PREDNISONE TAB [Concomitant]
     Indication: ANKYLOSING SPONDYLITIS
     Dosage: EVERY OTHER DAY
  3. FLOVENT [Concomitant]
     Indication: ASTHMA
     Dosage: DAILY
  4. VENTOLIN [Concomitant]
     Indication: ASTHMA

REACTIONS (1)
  - URINARY TRACT INFECTION [None]
